FAERS Safety Report 6141246-4 (Version None)
Quarter: 2009Q2

REPORT INFORMATION
  Report Type: 
  Country: None (occurrence: None)
  Receive Date: 20090402
  Receipt Date: 20090325
  Transmission Date: 20091009
  Serious: Yes (Death)
  Sender: FDA-Public Use
  Company Number: JP-WATSON-2009-02011

PATIENT
  Age: 72 Year
  Sex: Female

DRUGS (1)
  1. METHYLPREDNISOLONE ACETATE [Suspect]
     Indication: ANTIINFLAMMATORY THERAPY
     Dosage: 0.5 G, DAILY
     Route: 065
     Dates: start: 20070101

REACTIONS (2)
  - PANCREATIC CARCINOMA [None]
  - PANCREATITIS NECROTISING [None]
